FAERS Safety Report 9787677 (Version 1)
Quarter: 2013Q4

REPORT INFORMATION
  Report Type: Spontaneous
  Country: US (occurrence: None)
  Receive Date: 20131226
  Receipt Date: 20131226
  Transmission Date: 20140711
  Serious: Yes (Other)
  Sender: FDA-Public Use
  Company Number: 2013-US-004645

PATIENT
  Age: 36 Year
  Sex: Female

DRUGS (19)
  1. XYREM (SODIUM OXYBATE) ORAL SOLUTION, 500MG/ML [Suspect]
     Indication: NARCOLEPSY
     Route: 048
     Dates: start: 200712, end: 2008
  2. XYREM (SODIUM OXYBATE) ORAL SOLUTION, 500MG/ML [Suspect]
     Indication: CATAPLEXY
     Route: 048
     Dates: start: 200712, end: 2008
  3. NORVASC (AMLODIPINE BESILATE) [Concomitant]
  4. VITAMIN D (ERGOCALCIFEROL) [Concomitant]
  5. CALCIUM PHOSPHATE W/VITAMIN D NOS (CALCIUM PHOSPHATE, VITAMIN D NOS) [Concomitant]
  6. NAPROSYN (NAPROXEN) [Concomitant]
  7. NEURONTIN (GABAPENTIN) [Concomitant]
  8. VITAMIN B12 (CYANOCOBALAMIN) [Concomitant]
  9. VITAMIN B6 (PYRIDOXINE HYDROCHLORIDE) [Concomitant]
  10. VITAMIN B1 (THIAMINE HYDROCHLORIDE) [Concomitant]
  11. ZYRTEC (CETIRIZINE HYDROCHLORIDE) [Concomitant]
  12. FLUTICASONE (FLUTICASONE) [Concomitant]
  13. EPIPEN (EPINEPHRINE) [Concomitant]
  14. TOPAMAX (TOPIRAMATE) [Concomitant]
  15. OLOPATADINE (OLOPATADINE HYDROCHLORIDE) [Concomitant]
  16. ABILIFY (ARIPIPRAZOLE) [Concomitant]
  17. BENTYL (DICYCLOVERINE HYDROCHLORIDE) [Concomitant]
  18. ZYFLO (ZILEUTON) [Concomitant]
  19. ADDERALL (AMFETAMINE ASPARTATE, AMFETAMINE SULFATE, DEXAMFETAMINE SACCHARATE, DEXAMFETAMINE SULFATE) [Concomitant]

REACTIONS (6)
  - Catheterisation cardiac [None]
  - Arthroscopy [None]
  - Tooth extraction [None]
  - Somnolence [None]
  - Weight decreased [None]
  - Synovial cyst [None]
